FAERS Safety Report 9946400 (Version 2)
Quarter: 2014Q1

REPORT INFORMATION
  Report Type: Spontaneous
  Country: US (occurrence: US)
  Receive Date: 20140303
  Receipt Date: 20140303
  Transmission Date: 20141002
  Serious: No
  Sender: FDA-Public Use
  Company Number: US-AMGEN-USASP2013090854

PATIENT
  Age: 52 Year
  Sex: Female
  Weight: 84.35 kg

DRUGS (6)
  1. ENBREL [Suspect]
     Indication: RHEUMATOID ARTHRITIS
     Dosage: 50 MG, QWK
     Route: 058
     Dates: start: 20131120
  2. LOVASTATIN [Concomitant]
     Indication: HYPERLIPIDAEMIA
     Dosage: 10 MG, QD
     Route: 048
     Dates: start: 20131006
  3. AMITRIPTYLINE [Concomitant]
     Indication: ANXIETY
     Dosage: 100 MG, QD
     Route: 048
     Dates: start: 20130505
  4. VICODIN [Concomitant]
     Indication: PAIN
     Dosage: 1/2 TABLET, AS NECESSARY
     Route: 048
     Dates: start: 20041012
  5. OMEPRAZOLE [Concomitant]
     Indication: GASTROOESOPHAGEAL REFLUX DISEASE
     Dosage: 20 MG, QD
     Route: 048
     Dates: start: 20070830
  6. LEFLUNOMIDE [Concomitant]
     Indication: ARTHRITIS
     Dosage: 20 MG, QD
     Route: 048
     Dates: start: 20120531

REACTIONS (1)
  - Headache [Recovered/Resolved]
